FAERS Safety Report 17820920 (Version 2)
Quarter: 2020Q2

REPORT INFORMATION
  Report Type: Spontaneous
  Country: BR (occurrence: BR)
  Receive Date: 20200525
  Receipt Date: 20200529
  Transmission Date: 20200714
  Serious: Yes (Other)
  Sender: FDA-Public Use
  Company Number: NVSC2020BR141224

PATIENT
  Age: 63 Year
  Sex: Female
  Weight: 62 kg

DRUGS (4)
  1. VALSARTAN. [Concomitant]
     Active Substance: VALSARTAN
     Indication: BLOOD PRESSURE INCREASED
     Route: 065
  2. DIOVAN [Suspect]
     Active Substance: VALSARTAN
     Dosage: 160 MG/5 MG, QD (STARTED 5 YEARS AGO)
     Route: 048
     Dates: end: 202001
  3. DIOVAN [Suspect]
     Active Substance: VALSARTAN
     Dosage: 80 MG
     Route: 065
     Dates: start: 201912
  4. DIOVAN [Suspect]
     Active Substance: VALSARTAN
     Indication: HYPERTENSION
     Dosage: 160 MG, 3 YEARS AGO
     Route: 065
     Dates: end: 201912

REACTIONS (8)
  - Heart rate [Not Recovered/Not Resolved]
  - Blood pressure decreased [Recovered/Resolved]
  - Back pain [Unknown]
  - Hypertension [Recovering/Resolving]
  - Arrhythmia [Unknown]
  - Chest pain [Unknown]
  - Malaise [Recovering/Resolving]
  - Asthenia [Not Recovered/Not Resolved]

NARRATIVE: CASE EVENT DATE: 201912
